FAERS Safety Report 7597610-X (Version None)
Quarter: 2011Q3

REPORT INFORMATION
  Report Type: 
  Country: None (occurrence: None)
  Receive Date: 20110708
  Receipt Date: 20110629
  Transmission Date: 20111222
  Serious: Yes (Hospitalization)
  Sender: FDA-Public Use
  Company Number: FR-ROCHE-786613

PATIENT
  Sex: Female
  Weight: 65 kg

DRUGS (8)
  1. SINEMET [Suspect]
     Indication: PARKINSON'S DISEASE
     Route: 048
  2. AZILECT [Suspect]
     Indication: PARKINSON'S DISEASE
     Route: 048
     Dates: start: 20110217
  3. MOTILIUM [Concomitant]
     Route: 048
     Dates: end: 20110314
  4. FIXICAL [Concomitant]
     Route: 048
     Dates: end: 20110314
  5. BONIVA [Suspect]
     Route: 048
     Dates: end: 20110314
  6. FENOFIBRATE [Concomitant]
     Route: 048
     Dates: end: 20110314
  7. BISOPROLOL FUMARATE AND HYDROCHLOROTHIAZIDE [Concomitant]
     Indication: HYPERTENSION
     Dosage: DOSE:  10 MG/6.25 MG
     Route: 048
     Dates: end: 20110314
  8. RABEPRAZOLE SODIUM [Concomitant]
     Dosage: DRUG NAME: PARIET 20 MG
     Route: 048

REACTIONS (1)
  - ATRIAL FIBRILLATION [None]
